FAERS Safety Report 5834962-2 (Version None)
Quarter: 2008Q3

REPORT INFORMATION
  Report Type: 
  Country: None (occurrence: None)
  Receive Date: 20080801
  Receipt Date: 20080717
  Transmission Date: 20090109
  Serious: Yes (Hospitalization, Other)
  Sender: FDA-Public Use
  Company Number: 2008BI018253

PATIENT
  Age: 46 Year
  Sex: Female

DRUGS (3)
  1. AVONEX [Suspect]
     Indication: MULTIPLE SCLEROSIS
     Dates: start: 20050101, end: 20061101
  2. AVONEX [Suspect]
     Indication: MULTIPLE SCLEROSIS
     Dates: start: 20061201, end: 20070809
  3. PRAVADUAL   (PRAVASTATIN SODIUM) [Suspect]
     Indication: DRUG USE FOR UNKNOWN INDICATION
     Dates: end: 20070809

REACTIONS (3)
  - AUTOIMMUNE HEPATITIS [None]
  - CYTOLYTIC HEPATITIS [None]
  - MYOCARDIAL INFARCTION [None]
